FAERS Safety Report 8079318-X (Version None)
Quarter: 2012Q1

REPORT INFORMATION
  Report Type: 
  Country: None (occurrence: None)
  Receive Date: 20120128
  Receipt Date: 20110821
  Transmission Date: 20120608
  Serious: No
  Sender: FDA-Public Use
  Company Number: US-ABBOTT-11P-163-0848378-00

PATIENT
  Age: 20 Year
  Sex: Female

DRUGS (2)
  1. PREDNISONE TAB [Concomitant]
     Indication: STILL'S DISEASE ADULT ONSET
  2. HUMIRA [Suspect]
     Indication: STILL'S DISEASE ADULT ONSET
     Dates: start: 20110805

REACTIONS (1)
  - INJECTION SITE ERYTHEMA [None]
